FAERS Safety Report 7456506-4 (Version None)
Quarter: 2011Q2

REPORT INFORMATION
  Report Type: 
  Country: None (occurrence: None)
  Receive Date: 20110503
  Receipt Date: 20110421
  Transmission Date: 20111010
  Serious: Yes (Hospitalization)
  Sender: FDA-Public Use
  Company Number: PHHO2011NL02163

PATIENT
  Sex: Female
  Weight: 17.8 kg

DRUGS (11)
  1. ACZ885 [Suspect]
     Indication: JUVENILE ARTHRITIS
     Dosage: 70MG
     Route: 058
  2. FOLIC ACID [Concomitant]
     Dosage: UNK
     Dates: start: 20081201
  3. ACZ885 [Suspect]
     Dosage: UNK
     Route: 058
     Dates: start: 20110204
  4. BLINDED ACZ885 [Suspect]
     Indication: JUVENILE ARTHRITIS
     Dosage: CODE NOT BROKEN
     Route: 058
     Dates: start: 20100111
  5. INDOMETHACIN [Concomitant]
     Indication: JUVENILE ARTHRITIS
     Dosage: UNK
     Dates: start: 20081201
  6. BLINDED PLACEBO [Suspect]
     Dosage: CODE NOT BROKEN
     Route: 058
  7. BLINDED NO TREATMENT RECEIVED [Suspect]
     Dosage: CODE NOT BROKEN
     Route: 058
  8. METHOTREXATE [Concomitant]
     Indication: JUVENILE ARTHRITIS
     Dosage: UNK
     Dates: start: 20081201
  9. BLINDED NO TREATMENT RECEIVED [Suspect]
     Indication: JUVENILE ARTHRITIS
     Dosage: CODE NOT BROKEN
     Route: 058
     Dates: start: 20100111
  10. BLINDED PLACEBO [Suspect]
     Indication: JUVENILE ARTHRITIS
     Dosage: CODE NOT BROKEN
     Route: 058
     Dates: start: 20100111
  11. BLINDED ACZ885 [Suspect]
     Dosage: CODE NOT BROKEN
     Route: 058

REACTIONS (2)
  - DRUG INEFFECTIVE [None]
  - LOWER RESPIRATORY TRACT INFECTION [None]
